FAERS Safety Report 8811821 (Version 2)
Quarter: 2012Q4

REPORT INFORMATION
  Report Type: 
  Country: US (occurrence: US)
  Receive Date: 20120927
  Receipt Date: 20121101
  Transmission Date: 20130627
  Serious: Yes (Hospitalization)
  Sender: FDA-Public Use
  Company Number: US-GLAXOSMITHKLINE-A0995304A

PATIENT
  Sex: Female

DRUGS (2)
  1. ADVAIR [Suspect]
     Route: 065
     Dates: start: 20101026
  2. VENTOLIN [Suspect]
     Route: 065

REACTIONS (1)
  - Hospitalisation [Unknown]
